FAERS Safety Report 19101719 (Version 1)
Quarter: 2021Q2

REPORT INFORMATION
  Report Type: Spontaneous
  Country: IN (occurrence: IN)
  Receive Date: 20210407
  Receipt Date: 20210407
  Transmission Date: 20210717
  Serious: Yes (Life-Threatening, Hospitalization)
  Sender: FDA-Public Use
  Company Number: IN-MYLANLABS-2021M1020915

PATIENT
  Age: 48 Year
  Sex: Male

DRUGS (2)
  1. METHOTREXATE. [Suspect]
     Active Substance: METHOTREXATE
     Indication: PSORIASIS
     Dosage: ADMINISTERED SINGLE DOSE
     Route: 065
  2. ETORICOXIB. [Interacting]
     Active Substance: ETORICOXIB
     Indication: ARTHRALGIA
     Dosage: 90 MILLIGRAM, QD
     Route: 065

REACTIONS (13)
  - Ulcer [Recovering/Resolving]
  - Hypophagia [Recovering/Resolving]
  - Toxicity to various agents [Recovering/Resolving]
  - Vomiting [Recovering/Resolving]
  - Diarrhoea [Recovering/Resolving]
  - Psoriasis [Recovering/Resolving]
  - Condition aggravated [Recovering/Resolving]
  - Scab [Recovering/Resolving]
  - Febrile neutropenia [Recovering/Resolving]
  - Renal impairment [Recovered/Resolved]
  - Drug interaction [Recovering/Resolving]
  - Pancytopenia [Recovered/Resolved]
  - Nausea [Recovering/Resolving]
